FAERS Safety Report 8973581 (Version 1)
Quarter: 2012Q4

REPORT INFORMATION
  Report Type: 
  Country: US (occurrence: US)
  Receive Date: 20121218
  Receipt Date: 20121218
  Transmission Date: 20130627
  Serious: Yes (Other)
  Sender: FDA-Public Use
  Company Number: US-BRISTOL-MYERS SQUIBB COMPANY-16421125

PATIENT
  Age: 10 Year
  Sex: Male

DRUGS (4)
  1. ABILIFY [Suspect]
     Indication: MENTAL RETARDATION
     Dosage: 1df:2mg in morning and 3mg at night
started as 1mg in morning and 2mg at night
  2. ABILIFY [Suspect]
     Indication: AUTISM
     Dosage: 1df:2mg in morning and 3mg at night
started as 1mg in morning and 2mg at night
  3. RISPERIDONE [Suspect]
     Indication: MENTAL RETARDATION
     Dosage: 1df:2mg in morning and 3mg at night
started as 1mg in morning and 2mg at night
  4. RISPERIDONE [Suspect]
     Indication: AUTISM
     Dosage: 1df:2mg in morning and 3mg at night
started as 1mg in morning and 2mg at night

REACTIONS (1)
  - Grand mal convulsion [Unknown]
